FAERS Safety Report 17021375 (Version 2)
Quarter: 2020Q2

REPORT INFORMATION
  Report Type: Spontaneous
  Country: CA (occurrence: CA)
  Receive Date: 20191112
  Receipt Date: 20200430
  Transmission Date: 20200713
  Serious: No
  Sender: FDA-Public Use
  Company Number: CA-BEH-2019109311

PATIENT
  Age: 65 Year
  Sex: Male

DRUGS (4)
  1. ALBUREX [Suspect]
     Active Substance: ALBUMIN HUMAN
     Indication: CHOLECYSTITIS
     Dosage: 27.5 MILLILITER FRACTION 1/4
     Route: 065
     Dates: start: 20190920, end: 20190920
  2. ALBUREX [Suspect]
     Active Substance: ALBUMIN HUMAN
     Dosage: 27.5 MILLIGRAM
     Route: 042
  3. ALBUREX [Suspect]
     Active Substance: ALBUMIN HUMAN
     Dosage: UNK, TOT
     Route: 065
     Dates: start: 20191107, end: 20191107
  4. TYLENOL [Concomitant]
     Active Substance: ACETAMINOPHEN
     Indication: PREMEDICATION
     Dosage: 975 MILLIGRAM
     Route: 065
     Dates: start: 20190919

REACTIONS (6)
  - Product use in unapproved indication [Unknown]
  - Hypersensitivity [Recovered/Resolved]
  - Hypersensitivity [Recovered/Resolved]
  - Body temperature increased [Recovered/Resolved]
  - No adverse event [Unknown]
  - Rash [Recovered/Resolved]

NARRATIVE: CASE EVENT DATE: 20190920
